FAERS Safety Report 7650891-6 (Version None)
Quarter: 2011Q3

REPORT INFORMATION
  Report Type: 
  Country: None (occurrence: None)
  Receive Date: 20110727
  Receipt Date: 20110712
  Transmission Date: 20111222
  Serious: Yes (Other)
  Sender: FDA-Public Use
  Company Number: FR-20110147

PATIENT
  Age: 47 Year
  Sex: Female

DRUGS (1)
  1. LIPIODOL (ETHIODIZED OIL) [Suspect]
     Indication: PRODUCT USED FOR UNKNOWN INDICATION

REACTIONS (1)
  - COMPUTERISED TOMOGRAM ABNORMAL [None]
